FAERS Safety Report 5921089-4 (Version None)
Quarter: 2008Q4

REPORT INFORMATION
  Report Type: 
  Country: None (occurrence: None)
  Receive Date: 20081016
  Receipt Date: 20081010
  Transmission Date: 20090506
  Serious: Yes (Hospitalization)
  Sender: FDA-Public Use
  Company Number: NO-ASTRAZENECA-2008SE04695

PATIENT
  Age: 64 Year
  Sex: Male

DRUGS (7)
  1. LISINOPRIL AND HYDROCHLOROTHIAZIDE [Suspect]
     Dosage: 20 MG/12.5 MG
     Route: 048
  2. ALBYL-E [Interacting]
     Dosage: 160 MG
     Route: 048
  3. IBUPROFEN [Interacting]
     Route: 048
     Dates: end: 20080128
  4. GLUCOPHAGE [Concomitant]
     Route: 048
  5. SIMVASTATIN [Concomitant]
     Route: 048
  6. SELO-ZOK [Concomitant]
     Route: 048
  7. AMARYL [Concomitant]
     Route: 048

REACTIONS (2)
  - DRUG INTERACTION [None]
  - RENAL FAILURE ACUTE [None]
